FAERS Safety Report 12119530 (Version 1)
Quarter: 2016Q1

REPORT INFORMATION
  Report Type: Spontaneous
  Country: US (occurrence: US)
  Receive Date: 20160226
  Receipt Date: 20160226
  Transmission Date: 20160526
  Serious: Yes (Hospitalization)
  Sender: FDA-Public Use
  Company Number: US-PFIZER INC-2016110867

PATIENT
  Age: 51 Year
  Sex: Female
  Weight: 93 kg

DRUGS (1)
  1. IBRANCE [Suspect]
     Active Substance: PALBOCICLIB
     Indication: BREAST CANCER
     Dosage: 125 MG, CYCLIC,DAILY FOR 21 DAYS THEN STOP FOR A WEEK
     Route: 048
     Dates: start: 201509

REACTIONS (5)
  - Bacteraemia [Recovered/Resolved]
  - Cholelithiasis [Recovered/Resolved]
  - Blood sodium decreased [Recovered/Resolved]
  - Kidney infection [Recovered/Resolved]
  - Blood glucose increased [Recovered/Resolved]

NARRATIVE: CASE EVENT DATE: 201602
